FAERS Safety Report 18725771 (Version 1)
Quarter: 2021Q1

REPORT INFORMATION
  Report Type: Spontaneous
  Country: GB (occurrence: GB)
  Receive Date: 20210111
  Receipt Date: 20210111
  Transmission Date: 20210419
  Serious: Yes (Hospitalization, Other)
  Sender: FDA-Public Use
  Company Number: GB-AMGEN-GBRSP2021001276

PATIENT
  Age: 13 Year
  Sex: Male

DRUGS (1)
  1. XGEVA [Suspect]
     Active Substance: DENOSUMAB
     Indication: ANEURYSMAL BONE CYST
     Dosage: 70 MILLIGRAM/SQ. METER, Q4WK
     Route: 058

REACTIONS (11)
  - Drug effective for unapproved indication [Unknown]
  - Acute kidney injury [Unknown]
  - Rebound effect [Unknown]
  - Hypertension [Unknown]
  - Blood parathyroid hormone decreased [Unknown]
  - Blood 25-hydroxycholecalciferol decreased [Unknown]
  - Off label use [Unknown]
  - Fatigue [Unknown]
  - Hypercalcaemia [Unknown]
  - Hypocalcaemia [Unknown]
  - Weight decreased [Unknown]
